FAERS Safety Report 18685614 (Version 5)
Quarter: 2022Q4

REPORT INFORMATION
  Report Type: Report from Study
  Country: US (occurrence: US)
  Receive Date: 20201231
  Receipt Date: 20221114
  Transmission Date: 20230112
  Serious: Yes (Other)
  Sender: FDA-Public Use
  Company Number: US-ABBVIE-20K-163-3710387-00

PATIENT
  Age: 62 Year
  Sex: Female
  Weight: 96.615 kg

DRUGS (8)
  1. SKYRIZI [Suspect]
     Active Substance: RISANKIZUMAB-RZAA
     Indication: Psoriasis
     Route: 058
     Dates: start: 20210226
  2. SKYRIZI [Suspect]
     Active Substance: RISANKIZUMAB-RZAA
     Route: 058
     Dates: start: 202101
  3. COVID-19 VACCINE [Concomitant]
     Indication: COVID-19 immunisation
     Dosage: TIME INTERVAL: 1 TOTAL: PFIZER
     Route: 030
     Dates: start: 20210105, end: 20210105
  4. COVID-19 VACCINE [Concomitant]
     Indication: COVID-19 immunisation
     Dosage: TIME INTERVAL: 1 TOTAL: PFIZER
     Route: 030
     Dates: start: 20210126, end: 20210126
  5. RIFAXIMIN [Concomitant]
     Active Substance: RIFAXIMIN
     Indication: Liver disorder
  6. LASIX [Concomitant]
     Active Substance: FUROSEMIDE
     Indication: Diuretic therapy
  7. SPIRONOLACTONE [Concomitant]
     Active Substance: SPIRONOLACTONE
     Indication: Diuretic therapy
  8. LACTULOSE [Concomitant]
     Active Substance: LACTULOSE
     Indication: Liver disorder

REACTIONS (2)
  - Hepatic cancer stage IV [Not Recovered/Not Resolved]
  - Intentional product misuse [Recovered/Resolved]

NARRATIVE: CASE EVENT DATE: 20201101
